FAERS Safety Report 13262581 (Version 1)
Quarter: 2017Q1

REPORT INFORMATION
  Report Type: Spontaneous
  Country: US (occurrence: US)
  Receive Date: 20170223
  Receipt Date: 20170223
  Transmission Date: 20170428
  Serious: Yes (Other)
  Sender: FDA-Public Use
  Company Number: US-ALKEM LABORATORIES LIMITED-US-ALKEM-2017-00048

PATIENT
  Age: 54 Year
  Sex: Female

DRUGS (4)
  1. METFORMIN HYDROCHLORIDE. [Suspect]
     Active Substance: METFORMIN HYDROCHLORIDE
     Dosage: 2 TABLETS OF 500MG A DAY
     Dates: start: 20161111
  2. METFORMIN HYDROCHLORIDE. [Suspect]
     Active Substance: METFORMIN HYDROCHLORIDE
     Dosage: 500MG FOR BREAKFAST AND TWO 500MG AT NIGHT
     Dates: start: 20161111
  3. METFORMIN HYDROCHLORIDE. [Suspect]
     Active Substance: METFORMIN HYDROCHLORIDE
     Indication: TYPE 2 DIABETES MELLITUS
     Dosage: 1 TABLET OF 500MG AT BREAKFAST AND 1 TABLET OF 500MG AT BEDTIME
     Dates: start: 201605
  4. METFORMIN HYDROCHLORIDE. [Suspect]
     Active Substance: METFORMIN HYDROCHLORIDE
     Dosage: 1 TABLETS OF 500MG A DAY
     Dates: start: 20161111

REACTIONS (6)
  - Vision blurred [Not Recovered/Not Resolved]
  - Migraine [Recovered/Resolved]
  - Headache [Unknown]
  - Papilloedema [Not Recovered/Not Resolved]
  - Nausea [Unknown]
  - Diarrhoea [Unknown]

NARRATIVE: CASE EVENT DATE: 201608
